FAERS Safety Report 18086307 (Version 5)
Quarter: 2020Q3

REPORT INFORMATION
  Report Type: Spontaneous
  Country: NZ (occurrence: NZ)
  Receive Date: 20200728
  Receipt Date: 20200915
  Transmission Date: 20201103
  Serious: Yes (Hospitalization)
  Sender: FDA-Public Use
  Company Number: NZ-BAXTER-2020BAX015084

PATIENT
  Age: 15 Year
  Sex: Male
  Weight: 80 kg

DRUGS (7)
  1. SODIUM CHLORIDE, 0.9%, SOLUTION FOR INFUSION [Suspect]
     Active Substance: SODIUM CHLORIDE
     Indication: MEDICATION DILUTION
     Dosage: VIA INFUSOR LV10, PICC, INFUSION RATE: 10ML/HR
     Route: 042
     Dates: start: 20200320, end: 202004
  2. SODIUM CHLORIDE, 0.9%, SOLUTION FOR INFUSION [Suspect]
     Active Substance: SODIUM CHLORIDE
     Dosage: VIA PICC
     Route: 042
     Dates: start: 20200423, end: 20200429
  3. FLUCIL (FLUCLOXACILLIN) [Suspect]
     Active Substance: FLUCLOXACILLIN
     Indication: STAPHYLOCOCCAL BACTERAEMIA
     Dosage: VIA INFUSOR LV10 PICC, INFUSION RATE 10ML/HR
     Route: 042
     Dates: start: 20200320, end: 202004
  4. CITRATE BUFFER [Suspect]
     Active Substance: SODIUM CITRATE
     Indication: MEDICATION DILUTION
     Dosage: VIA INFUSOR LV10, PICC, INFUSION RATE: 10ML/HR
     Route: 042
     Dates: start: 20200320, end: 202004
  5. FLUCIL (FLUCLOXACILLIN) [Suspect]
     Active Substance: FLUCLOXACILLIN
     Route: 042
     Dates: start: 202006
  6. SODIUM CHLORIDE, 0.9%, SOLUTION FOR INFUSION [Suspect]
     Active Substance: SODIUM CHLORIDE
     Route: 042
     Dates: start: 202006
  7. FLUCIL (FLUCLOXACILLIN) [Suspect]
     Active Substance: FLUCLOXACILLIN
     Indication: OSTEOMYELITIS ACUTE
     Dosage: VIA PICC
     Route: 042
     Dates: start: 20200423, end: 20200429

REACTIONS (5)
  - Incorrect drug administration rate [Unknown]
  - Treatment failure [Not Recovered/Not Resolved]
  - Device infusion issue [Unknown]
  - Osteomyelitis [Not Recovered/Not Resolved]
  - Staphylococcal infection [Not Recovered/Not Resolved]

NARRATIVE: CASE EVENT DATE: 20200406
